FAERS Safety Report 7796322-7 (Version None)
Quarter: 2011Q4

REPORT INFORMATION
  Report Type: 
  Country: None (occurrence: None)
  Receive Date: 20111005
  Receipt Date: 20110926
  Transmission Date: 20120403
  Serious: Yes (Hospitalization)
  Sender: FDA-Public Use
  Company Number: US-BIOGENIDEC-2011BI030295

PATIENT
  Age: 38 Year
  Sex: Female

DRUGS (1)
  1. TYSABRI [Suspect]
     Indication: MULTIPLE SCLEROSIS
     Route: 042
     Dates: start: 20110413, end: 20110714

REACTIONS (8)
  - ENDOMETRIOSIS [None]
  - DISTURBANCE IN ATTENTION [None]
  - WEIGHT INCREASED [None]
  - THYROID DISORDER [None]
  - OOPHORECTOMY [None]
  - NIGHT SWEATS [None]
  - ABDOMINAL PAIN [None]
  - BACK PAIN [None]
